FAERS Safety Report 6025740-2 (Version None)
Quarter: 2009Q1

REPORT INFORMATION
  Report Type: 
  Country: None (occurrence: None)
  Receive Date: 20090101
  Receipt Date: 20081223
  Transmission Date: 20090719
  Serious: Yes (Hospitalization, Other)
  Sender: FDA-Public Use
  Company Number: CA-ELI_LILLY_AND_COMPANY-CA200807002315

PATIENT
  Sex: Female

DRUGS (6)
  1. FORTEO [Suspect]
     Indication: OSTEOPOROSIS
     Dosage: 20 UG, DAILY (1/D)
     Route: 058
     Dates: start: 20061109, end: 20080506
  2. VENTOLIN                                /SCH/ [Concomitant]
  3. FLOVENT [Concomitant]
  4. CALCIUM [Concomitant]
  5. VITAMIN D [Concomitant]
  6. ZITHROMAX [Concomitant]

REACTIONS (3)
  - BRONCHIECTASIS [None]
  - PSEUDOMONAS INFECTION [None]
  - PULMONARY CALCIFICATION [None]
